FAERS Safety Report 4753552-6 (Version None)
Quarter: 2005Q3

REPORT INFORMATION
  Report Type: 
  Country: None (occurrence: None)
  Receive Date: 20050826
  Receipt Date: 20050819
  Transmission Date: 20060218
  Serious: Yes (Other)
  Sender: FDA-Public Use
  Company Number: 200512698EU

PATIENT
  Age: 39 Year
  Sex: Female
  Weight: 60 kg

DRUGS (3)
  1. LASIX [Suspect]
     Indication: HYPERTENSION
     Route: 048
     Dates: start: 20000801
  2. CLONAZEPAM [Concomitant]
     Indication: CARDIAC DISORDER
     Route: 048
  3. TEICOPLANIN [Concomitant]
     Indication: ENDOCARDITIS
     Route: 042
     Dates: start: 20050619, end: 20050801

REACTIONS (1)
  - HYPOGLYCAEMIA [None]
